FAERS Safety Report 11150955 (Version 1)
Quarter: 2015Q2

REPORT INFORMATION
  Report Type: Spontaneous
  Country: US (occurrence: US)
  Receive Date: 20150601
  Receipt Date: 20150601
  Transmission Date: 20150821
  Serious: Yes (Hospitalization)
  Sender: FDA-Public Use
  Company Number: US-ACCORD-031144

PATIENT
  Age: 50 Year
  Sex: Male

DRUGS (1)
  1. QUETIAPINE [Suspect]
     Active Substance: QUETIAPINE
     Indication: BIPOLAR DISORDER

REACTIONS (6)
  - Neutropenia [Recovered/Resolved]
  - Pancreatitis acute [Recovering/Resolving]
  - Hypertriglyceridaemia [Recovered/Resolved]
  - Pancytopenia [Recovered/Resolved]
  - Diabetes mellitus [Recovered/Resolved]
  - Hyperosmolar hyperglycaemic state [Recovering/Resolving]
